FAERS Safety Report 6976185-X (Version None)
Quarter: 2010Q3

REPORT INFORMATION
  Report Type: 
  Country: None (occurrence: None)
  Receive Date: 20100910
  Receipt Date: 20100908
  Transmission Date: 20110219
  Serious: Yes (Death, Hospitalization)
  Sender: FDA-Public Use
  Company Number: ES-ELI_LILLY_AND_COMPANY-ES201008008739

PATIENT
  Sex: Male

DRUGS (12)
  1. PEMETREXED [Suspect]
     Indication: HEAD AND NECK CANCER
     Dosage: 500 MG/M2 ON DAY 1 EVERY 21 DAYS
     Route: 042
     Dates: start: 20100608, end: 20100817
  2. CETUXIMAB [Suspect]
     Indication: HEAD AND NECK CANCER
     Dosage: 400 MG/M2 LOADING DOSE ON DAY ONE OF CYCLE ONE
     Route: 042
     Dates: start: 20100608
  3. CETUXIMAB [Suspect]
     Dosage: 250 MG/M2, WEEKLY (1/W)
     Route: 042
     Dates: end: 20100824
  4. CISPLATIN [Suspect]
     Indication: HEAD AND NECK CANCER
     Dosage: 75 MG/M2 ON DAY ONE EVERY 21 DAYS
     Route: 042
     Dates: start: 20100608, end: 20100817
  5. FOLIC ACID [Concomitant]
     Indication: PROPHYLAXIS
     Dates: start: 20100527
  6. VITAMIN B-12 [Concomitant]
     Indication: PROPHYLAXIS
     Dates: start: 20100527
  7. DEXAMETHASONE [Concomitant]
     Indication: PROPHYLAXIS
     Dates: start: 20100607
  8. FENTANYL CITRATE [Concomitant]
     Indication: PAIN
     Dosage: UNK, UNK
     Dates: start: 20100824
  9. IMPORTAL [Concomitant]
     Indication: CONSTIPATION
  10. MYCOSTATIN [Concomitant]
     Indication: PROPHYLAXIS
     Dates: start: 20100824
  11. LIDOCAINE [Concomitant]
     Indication: MUCOSITIS MANAGEMENT
     Dosage: 2 %, UNKNOWN
     Route: 065
     Dates: start: 20100824
  12. INNOHEP [Concomitant]
     Indication: PULMONARY EMBOLISM
     Dates: start: 20100720

REACTIONS (5)
  - ASPIRATION [None]
  - DRUG TOXICITY [None]
  - DYSPHAGIA [None]
  - MUCOSAL INFLAMMATION [None]
  - OROPHARYNGEAL PAIN [None]
